FAERS Safety Report 5107289-4 (Version None)
Quarter: 2006Q3

REPORT INFORMATION
  Report Type: 
  Country: None (occurrence: None)
  Receive Date: 20060913
  Receipt Date: 20060830
  Transmission Date: 20061208
  Serious: Yes (Other)
  Sender: FDA-Public Use
  Company Number: US018213

PATIENT
  Age: 53 Year
  Sex: Male

DRUGS (3)
  1. TRISENOX [Suspect]
     Indication: ACUTE PROMYELOCYTIC LEUKAEMIA
     Dosage: 4.425 MG QD INTRAVENOUS DRIP
     Route: 041
     Dates: start: 20060203, end: 20060210
  2. TRISENOX [Suspect]
     Indication: ACUTE PROMYELOCYTIC LEUKAEMIA
     Dosage: 8.85 MG QD INTRAVENOUS DRIP
     Route: 041
     Dates: start: 20060211, end: 20060403
  3. GABEXATE MESILATE [Concomitant]

REACTIONS (6)
  - ALANINE AMINOTRANSFERASE INCREASED [None]
  - ASPARTATE AMINOTRANSFERASE INCREASED [None]
  - BLOOD CALCIUM DECREASED [None]
  - BLOOD MAGNESIUM DECREASED [None]
  - BLOOD SODIUM DECREASED [None]
  - NEUTROPHIL COUNT DECREASED [None]
